FAERS Safety Report 12243799 (Version 4)
Quarter: 2016Q4

REPORT INFORMATION
  Report Type: Report from Study
  Country: BR (occurrence: BR)
  Receive Date: 20160406
  Receipt Date: 20161221
  Transmission Date: 20170207
  Serious: Yes (Hospitalization)
  Sender: FDA-Public Use
  Company Number: PHHY2016BR044593

PATIENT
  Sex: Female
  Weight: 56 kg

DRUGS (5)
  1. EXJADE [Suspect]
     Active Substance: DEFERASIROX
     Indication: SICKLE CELL ANAEMIA
     Dosage: 1000 MG (20 MG/KG), UNK
     Route: 065
     Dates: start: 2013
  2. EXJADE [Suspect]
     Active Substance: DEFERASIROX
     Dosage: 1500 MG, QD (3 DISPERSIBLE TABLET)
     Route: 048
     Dates: start: 2015
  3. EXJADE [Suspect]
     Active Substance: DEFERASIROX
     Dosage: 2 DF, (500 MG) QD
     Route: 048
  4. HIDROXIUREA [Concomitant]
     Active Substance: HYDROXYUREA
     Indication: SICKLE CELL ANAEMIA
     Dosage: 2 DF, QD
     Route: 048
  5. FOLIC ACID. [Concomitant]
     Active Substance: FOLIC ACID
     Indication: SICKLE CELL ANAEMIA
     Dosage: 1 DF, QD
     Route: 048

REACTIONS (8)
  - Pain in extremity [Recovering/Resolving]
  - Peripheral ischaemia [Recovered/Resolved]
  - Sickle cell anaemia with crisis [Recovering/Resolving]
  - Arthralgia [Recovered/Resolved]
  - Pain [Unknown]
  - Spinal cord ischaemia [Recovered/Resolved]
  - Spinal column injury [Recovered/Resolved]
  - Serum ferritin increased [Recovered/Resolved]
